FAERS Safety Report 8630592 (Version 2)
Quarter: 2012Q4

REPORT INFORMATION
  Report Type: 
  Country: DE (occurrence: DE)
  Receive Date: 20120622
  Receipt Date: 20120911
  Transmission Date: 20130627
  Serious: Yes (Hospitalization, Other)
  Sender: FDA-Public Use
  Company Number: DE-JNJFOC-20120608916

PATIENT
  Age: 81 Year
  Sex: Female

DRUGS (2)
  1. XARELTO [Suspect]
     Indication: EMBOLISM VENOUS
     Route: 065
     Dates: start: 20120124
  2. XARELTO [Suspect]
     Indication: THROMBOSIS
     Route: 065
     Dates: start: 20120124

REACTIONS (1)
  - Ischaemic stroke [Recovered/Resolved]
